FAERS Safety Report 12114252 (Version 1)
Quarter: 2016Q1

REPORT INFORMATION
  Report Type: Report from Study
  Country: US (occurrence: US)
  Receive Date: 20160225
  Receipt Date: 20160225
  Transmission Date: 20160526
  Serious: Yes (Hospitalization)
  Sender: FDA-Public Use
  Company Number: US-EISAI MEDICAL RESEARCH-EC-2016-013539

PATIENT
  Sex: Female
  Weight: 88 kg

DRUGS (20)
  1. MORPHINE [Concomitant]
     Active Substance: MORPHINE
  2. MULTIVITAMINS [Concomitant]
     Active Substance: VITAMINS
  3. LASIX [Concomitant]
     Active Substance: FUROSEMIDE
  4. METOPROLOL. [Concomitant]
     Active Substance: METOPROLOL
  5. COLACE [Concomitant]
     Active Substance: DOCUSATE SODIUM
  6. FENOFIBRATE. [Concomitant]
     Active Substance: FENOFIBRATE
  7. METAMUCIL [Concomitant]
     Active Substance: PLANTAGO SEED
  8. LISINOPRIL. [Concomitant]
     Active Substance: LISINOPRIL
  9. LEVOTHYROXINE. [Concomitant]
     Active Substance: LEVOTHYROXINE
  10. VITAMIN C [Concomitant]
     Active Substance: ASCORBIC ACID
  11. LENVIMA [Suspect]
     Active Substance: LENVATINIB
     Indication: THYROID CANCER
     Route: 048
     Dates: start: 20160108
  12. VITAMIN D3 [Concomitant]
     Active Substance: CHOLECALCIFEROL
  13. CALCIUM + D [Concomitant]
     Active Substance: CALCIUM\VITAMIN D
  14. FISH OIL [Concomitant]
     Active Substance: FISH OIL
  15. DULCOLAX NOS [Concomitant]
     Active Substance: BISACODYL OR DOCUSATE SODIUM
  16. LEXAPRO [Concomitant]
     Active Substance: ESCITALOPRAM OXALATE
  17. MAGNESIUM [Concomitant]
     Active Substance: MAGNESIUM
  18. HYDROMORPHONE [Concomitant]
     Active Substance: HYDROMORPHONE
  19. MOTRIN [Concomitant]
     Active Substance: IBUPROFEN
  20. KLOR-CON [Concomitant]
     Active Substance: POTASSIUM CHLORIDE

REACTIONS (8)
  - Pain [Unknown]
  - Upper limb fracture [Unknown]
  - Hypertension [Unknown]
  - Loss of consciousness [Recovered/Resolved]
  - Constipation [Unknown]
  - Localised infection [Unknown]
  - Tumour haemorrhage [Unknown]
  - Fall [Recovered/Resolved]

NARRATIVE: CASE EVENT DATE: 2016
